FAERS Safety Report 7037199-7 (Version None)
Quarter: 2010Q4

REPORT INFORMATION
  Report Type: 
  Country: None (occurrence: None)
  Receive Date: 20101011
  Receipt Date: 20100928
  Transmission Date: 20110411
  Serious: Yes (Other)
  Sender: FDA-Public Use
  Company Number: DE-ELI_LILLY_AND_COMPANY-DE201004003432

PATIENT
  Age: 70 Year
  Sex: Female
  Weight: 80 kg

DRUGS (7)
  1. FORTEO [Suspect]
     Indication: OSTEOPOROSIS
     Dosage: UNK, UNKNOWN
     Route: 058
     Dates: start: 20100126
  2. FORTEO [Suspect]
     Dosage: UNK, UNKNOWN
     Route: 058
     Dates: start: 20100901
  3. RIFUN [Concomitant]
     Dosage: UNK, UNKNOWN
     Route: 065
  4. MST [Concomitant]
     Dosage: UNK, OTHER
     Route: 065
  5. CITALOPRAM HYDROBROMIDE [Concomitant]
     Dosage: 50 MG, UNKNOWN
     Route: 065
  6. IRON [Concomitant]
     Dosage: UNK, UNKNOWN
     Route: 065
  7. ANTIDEPRESSANTS [Concomitant]
     Dosage: UNK, UNKNOWN
     Route: 065

REACTIONS (9)
  - DEPRESSED MOOD [None]
  - DEPRESSION [None]
  - DIARRHOEA [None]
  - FATIGUE [None]
  - GENERAL PHYSICAL HEALTH DETERIORATION [None]
  - HAEMOGLOBIN DECREASED [None]
  - INCREASED APPETITE [None]
  - IRON DEFICIENCY [None]
  - WEIGHT INCREASED [None]
